FAERS Safety Report 7470970-6 (Version None)
Quarter: 2011Q2

REPORT INFORMATION
  Report Type: 
  Country: None (occurrence: None)
  Receive Date: 20110506
  Receipt Date: 20110506
  Transmission Date: 20111010
  Serious: Yes (Life-Threatening)
  Sender: FDA-Public Use
  Company Number: None

PATIENT
  Sex: Female
  Weight: 81.8 kg

DRUGS (1)
  1. HYZAAR [Suspect]
     Indication: HYPERTENSION
     Dosage: 1 TABLET (100/25) DAILY IN THE AM ORAL
     Route: 048

REACTIONS (3)
  - EPISTAXIS [None]
  - THROMBOSIS [None]
  - BLOOD PRESSURE INCREASED [None]
